FAERS Safety Report 8948781 (Version 2)
Quarter: 2013Q1

REPORT INFORMATION
  Report Type: Spontaneous
  Country: US (occurrence: US)
  Receive Date: 20121206
  Receipt Date: 20130219
  Transmission Date: 20140127
  Serious: Yes (Other)
  Sender: FDA-Public Use
  Company Number: US-BAYER-2012-121444

PATIENT
  Age: 58 Year
  Sex: Female
  Weight: 72.56 kg

DRUGS (2)
  1. GADAVIST [Suspect]
     Indication: NUCLEAR MAGNETIC RESONANCE IMAGING SPINAL
     Dosage: 8 ML, UNK
     Route: 042
  2. GADAVIST [Suspect]
     Indication: OSTEOMYELITIS

REACTIONS (2)
  - Angioedema [None]
  - Urticaria [None]
